FAERS Safety Report 17250240 (Version 5)
Quarter: 2020Q4

REPORT INFORMATION
  Report Type: Report from Study
  Country: None (occurrence: US)
  Receive Date: 20200109
  Receipt Date: 20201022
  Transmission Date: 20210113
  Serious: Yes (Hospitalization, Other)
  Sender: FDA-Public Use
  Company Number: US-ABBVIE-20K-163-3225194-00

PATIENT
  Age: 64 Year
  Sex: Female
  Weight: 86.26 kg

DRUGS (7)
  1. VITAMIN D [Concomitant]
     Active Substance: VITAMIN D NOS
     Indication: SUPPLEMENTATION THERAPY
  2. HUMIRA [Suspect]
     Active Substance: ADALIMUMAB
     Route: 058
     Dates: start: 202001
  3. AREDS [Concomitant]
     Active Substance: MINERALS\VITAMINS
     Indication: SUPPLEMENTATION THERAPY
  4. LISINOPRIL. [Concomitant]
     Active Substance: LISINOPRIL
     Indication: HYPERTENSION
  5. FISH OIL [Concomitant]
     Active Substance: FISH OIL
     Indication: SUPPLEMENTATION THERAPY
  6. CETIRIZINE [Concomitant]
     Active Substance: CETIRIZINE HYDROCHLORIDE
     Indication: HYPERSENSITIVITY
  7. HUMIRA [Suspect]
     Active Substance: ADALIMUMAB
     Indication: RHEUMATOID ARTHRITIS
     Route: 058
     Dates: start: 2012, end: 201909

REACTIONS (24)
  - Meniscus injury [Recovered/Resolved]
  - Cartilage injury [Recovered/Resolved]
  - Rheumatoid arthritis [Not Recovered/Not Resolved]
  - Joint warmth [Not Recovered/Not Resolved]
  - Inflammation [Not Recovered/Not Resolved]
  - Septic shock [Recovered/Resolved]
  - Rectal haemorrhage [Recovered/Resolved]
  - Swelling of eyelid [Recovered/Resolved]
  - Cholelithiasis [Recovered/Resolved]
  - Accident [Unknown]
  - Polyp [Recovered/Resolved]
  - Faeces discoloured [Recovered/Resolved]
  - Diverticulitis [Recovered/Resolved]
  - Osteoarthritis [Not Recovered/Not Resolved]
  - Diverticulum [Recovered/Resolved]
  - Eye infection [Recovered/Resolved]
  - Colitis ulcerative [Recovering/Resolving]
  - Large intestinal ulcer haemorrhage [Recovered/Resolved]
  - Mucous stools [Recovered/Resolved]
  - Conjunctivitis [Recovered/Resolved]
  - Stress [Unknown]
  - Precancerous cells present [Recovered/Resolved]
  - Meniscus injury [Recovered/Resolved]
  - Swelling [Not Recovered/Not Resolved]

NARRATIVE: CASE EVENT DATE: 201908
